FAERS Safety Report 9169442 (Version 1)
Quarter: 2013Q1

REPORT INFORMATION
  Report Type: Spontaneous
  Country: US (occurrence: US)
  Receive Date: 20130318
  Receipt Date: 20130318
  Transmission Date: 20140127
  Serious: Yes (Other)
  Sender: FDA-Public Use
  Company Number: US-ELI_LILLY_AND_COMPANY-US201303004151

PATIENT
  Age: 62 Year
  Sex: Female

DRUGS (1)
  1. FORTEO [Suspect]

REACTIONS (6)
  - Hip fracture [Unknown]
  - Pelvic fracture [Unknown]
  - Fracture [Unknown]
  - Body height decreased [Unknown]
  - Lower limb fracture [Unknown]
  - Pain [Unknown]
